FAERS Safety Report 14231186 (Version 1)
Quarter: 2017Q4

REPORT INFORMATION
  Report Type: Spontaneous
  Country: US (occurrence: US)
  Receive Date: 20171128
  Receipt Date: 20171128
  Transmission Date: 20180321
  Serious: No
  Sender: FDA-Public Use
  Company Number: US-JNJFOC-20171015689

PATIENT
  Age: 64 Year
  Sex: Female
  Weight: 58.51 kg

DRUGS (2)
  1. WOMENS ROGAINE UNSCENTED [Suspect]
     Active Substance: MINOXIDIL
     Route: 061
  2. WOMENS ROGAINE UNSCENTED [Suspect]
     Active Substance: MINOXIDIL
     Indication: ALOPECIA
     Dosage: 1/2 CAPFUL
     Route: 061
     Dates: start: 20171001

REACTIONS (7)
  - Off label use [Recovered/Resolved]
  - Product quality issue [Unknown]
  - Overdose [Unknown]
  - Inappropriate schedule of drug administration [Recovered/Resolved]
  - Seborrhoea [Recovered/Resolved]
  - Product use in unapproved indication [Recovered/Resolved]
  - Product formulation issue [Unknown]

NARRATIVE: CASE EVENT DATE: 201710
